FAERS Safety Report 7425873-X (Version None)
Quarter: 2011Q2

REPORT INFORMATION
  Report Type: 
  Country: None (occurrence: None)
  Receive Date: 20110420
  Receipt Date: 20110411
  Transmission Date: 20111010
  Serious: Yes (Hospitalization, Other)
  Sender: FDA-Public Use
  Company Number: US-ROCHE-733713

PATIENT
  Sex: Male

DRUGS (20)
  1. LEXAPRO [Concomitant]
     Dates: start: 20080424
  2. OMEPRAZOLE [Concomitant]
     Dates: start: 20080718
  3. BACTRIM [Concomitant]
     Dates: start: 20100730
  4. VALCYTE [Concomitant]
     Dates: start: 20100730
  5. MYCOPHENOLATE MOFETIL [Suspect]
     Route: 065
     Dates: start: 20081105
  6. PREDNISONE [Suspect]
     Indication: RENAL TRANSPLANT
     Route: 065
     Dates: start: 20100806
  7. COREG [Concomitant]
     Dates: start: 20090604
  8. SPIRONOLACTONE [Concomitant]
     Dates: start: 20090706
  9. CELEXA [Concomitant]
     Dates: start: 20100225
  10. TUMS ULTRA [Concomitant]
     Dates: start: 20090116
  11. AMLODIPINE [Concomitant]
     Dates: start: 20090403
  12. LOPID [Concomitant]
     Dates: start: 20080308
  13. FLOMAX [Concomitant]
     Dates: start: 20091004
  14. BELATACEPT [Suspect]
     Indication: RENAL TRANSPLANT
     Dosage: FORM: INFUSION (AS PER PROTOCOL)
     Route: 042
     Dates: start: 20090129
  15. ACETAMINOPHEN [Concomitant]
     Dates: start: 20080425
  16. CALCITRIOL [Concomitant]
     Dates: start: 20090403
  17. ACTOS [Concomitant]
     Dates: start: 20100803
  18. COUMADIN [Concomitant]
     Dates: start: 20090604
  19. ENALAPRIL MALEATE [Concomitant]
     Dates: start: 20090604
  20. FUROSEMIDE [Concomitant]
     Dates: start: 20100729

REACTIONS (3)
  - PNEUMONIA [None]
  - INCLUSION BODY MYOSITIS [None]
  - PNEUMONIA ASPIRATION [None]
